FAERS Safety Report 8609323-3 (Version None)
Quarter: 2012Q3

REPORT INFORMATION
  Report Type: 
  Country: None (occurrence: None)
  Receive Date: 20120821
  Receipt Date: 20120817
  Transmission Date: 20120928
  Serious: Yes (Death, Other)
  Sender: FDA-Public Use
  Company Number: PHHY2012GB071795

PATIENT
  Age: 12 Day
  Sex: Male

DRUGS (4)
  1. METHADONE HYDROCHLORIDE [Suspect]
     Route: 064
  2. DIACETYLMORPHINE [Suspect]
     Route: 064
  3. DIAZEPAM [Suspect]
     Route: 064
  4. COCAINE [Suspect]
     Route: 064

REACTIONS (5)
  - PREMATURE BABY [None]
  - LOW BIRTH WEIGHT BABY [None]
  - DRUG LEVEL INCREASED [None]
  - FOETAL EXPOSURE DURING PREGNANCY [None]
  - DEATH [None]
